FAERS Safety Report 10751053 (Version 2)
Quarter: 2015Q1

REPORT INFORMATION
  Report Type: Other
  Country: DE (occurrence: DE)
  Receive Date: 20150130
  Receipt Date: 20150212
  Transmission Date: 20150721
  Serious: Yes (Congenital Anomaly)
  Sender: FDA-Public Use
  Company Number: DE-MYLANLABS-2015M1001926

PATIENT

DRUGS (3)
  1. VENLAFAXINE [Suspect]
     Active Substance: VENLAFAXINE HYDROCHLORIDE
     Indication: DEPRESSION
     Dosage: 75 [MG/D ]
     Route: 064
     Dates: start: 20131216, end: 20140922
  2. IBUPROFEN. [Concomitant]
     Active Substance: IBUPROFEN
     Indication: HEADACHE
     Dosage: UNK
     Route: 064
     Dates: start: 20140101, end: 20140101
  3. FEMIBION SCHWANGERSCHAFT 1 [Concomitant]
     Indication: PROPHYLAXIS OF NEURAL TUBE DEFECT
     Dosage: 0.8 [MG/D ]
     Route: 064
     Dates: start: 20140116, end: 20140922

REACTIONS (2)
  - Ventricular septal defect [Not Recovered/Not Resolved]
  - Foetal exposure during pregnancy [Unknown]

NARRATIVE: CASE EVENT DATE: 20140922
